FAERS Safety Report 8251822-0 (Version None)
Quarter: 2012Q2

REPORT INFORMATION
  Report Type: 
  Country: None (occurrence: None)
  Receive Date: 20120402
  Receipt Date: 20120321
  Transmission Date: 20120825
  Serious: Yes (Hospitalization)
  Sender: FDA-Public Use
  Company Number: JP-VERTEX PHARMACEUTICALS INC.-AE-2012-003585

PATIENT
  Sex: Male

DRUGS (9)
  1. DOGMATYL [Concomitant]
  2. LOXONIN [Concomitant]
  3. REBETOL [Concomitant]
     Route: 048
     Dates: start: 20120321
  4. PEG-INTRON [Concomitant]
     Indication: HEPATITIS C
     Route: 058
     Dates: start: 20120117, end: 20120309
  5. VX-950 [Suspect]
     Indication: HEPATITIS C
     Route: 048
     Dates: start: 20120117, end: 20120309
  6. PEG-INTRON [Concomitant]
     Dates: start: 20120321
  7. MUCOSTA [Concomitant]
  8. REBETOL [Concomitant]
     Indication: HEPATITIS C
     Route: 048
     Dates: start: 20120117, end: 20120309
  9. SELBEX [Concomitant]

REACTIONS (1)
  - DECREASED APPETITE [None]
